FAERS Safety Report 10008352 (Version 2)
Quarter: 2014Q1

REPORT INFORMATION
  Report Type: Spontaneous
  Country: US (occurrence: US)
  Receive Date: 20140313
  Receipt Date: 20140313
  Transmission Date: 20141002
  Serious: No
  Sender: FDA-Public Use
  Company Number: US-GILEAD-2013-0077043

PATIENT
  Sex: Male

DRUGS (2)
  1. LETAIRIS [Suspect]
     Indication: PULMONARY ARTERIAL HYPERTENSION
     Dosage: 5 MG, QD
     Route: 048
     Dates: start: 20130128
  2. ADCIRCA [Concomitant]

REACTIONS (3)
  - Conjunctival hyperaemia [Unknown]
  - Conjunctival oedema [Unknown]
  - Foreign body sensation in eyes [Unknown]
